FAERS Safety Report 11220195 (Version 1)
Quarter: 2015Q2

REPORT INFORMATION
  Report Type: Spontaneous
  Country: US (occurrence: None)
  Receive Date: 20150624
  Receipt Date: 20150624
  Transmission Date: 20150821
  Serious: Yes (Disabling)
  Sender: FDA-Public Use
  Company Number: None

PATIENT
  Age: 44 Year
  Sex: Male
  Weight: 79.38 kg

DRUGS (1)
  1. LISINOPRIL. [Suspect]
     Active Substance: LISINOPRIL
     Indication: BLOOD PRESSURE INCREASED
     Dosage: 1, ONCE DAILY, TAKEN BY MOUTH
     Route: 048

REACTIONS (6)
  - Hearing impaired [None]
  - Tachycardia [None]
  - Tinnitus [None]
  - Anxiety [None]
  - Quality of life decreased [None]
  - Toxicity to various agents [None]

NARRATIVE: CASE EVENT DATE: 20141113
